FAERS Safety Report 22376900 (Version 1)
Quarter: 2023Q2

REPORT INFORMATION
  Report Type: Report from Study
  Country: DE (occurrence: DE)
  Receive Date: 20230529
  Receipt Date: 20230529
  Transmission Date: 20230722
  Serious: Yes (Other)
  Sender: FDA-Public Use
  Company Number: DE-JNJFOC-20230547633

PATIENT

DRUGS (1)
  1. IMBRUVICA [Suspect]
     Active Substance: IBRUTINIB
     Indication: Chronic lymphocytic leukaemia
     Route: 048

REACTIONS (7)
  - Pulmonary oedema [Unknown]
  - Neutropenia [Unknown]
  - Arrhythmia [Unknown]
  - Cardiac failure [Unknown]
  - Dyspnoea at rest [Unknown]
  - Ventricular tachycardia [Unknown]
  - Anaemia [Unknown]
